FAERS Safety Report 11876355 (Version 1)
Quarter: 2015Q4

REPORT INFORMATION
  Report Type: Spontaneous
  Country: US (occurrence: US)
  Receive Date: 20151229
  Receipt Date: 20151229
  Transmission Date: 20160305
  Serious: Yes (Other)
  Sender: FDA-Public Use
  Company Number: US-JNJFOC-20151219191

PATIENT
  Sex: Male

DRUGS (1)
  1. HALDOL [Suspect]
     Active Substance: HALOPERIDOL
     Indication: PRODUCT USED FOR UNKNOWN INDICATION
     Route: 030
     Dates: start: 201403, end: 201501

REACTIONS (7)
  - Binge drinking [Unknown]
  - Fatigue [Unknown]
  - Lymphadenopathy [Unknown]
  - Central nervous system infection [Unknown]
  - Incorrect dose administered [Unknown]
  - Adverse event [Unknown]
  - Dizziness [Unknown]

NARRATIVE: CASE EVENT DATE: 201503
